FAERS Safety Report 6039381-4 (Version None)
Quarter: 2009Q1

REPORT INFORMATION
  Report Type: 
  Country: None (occurrence: None)
  Receive Date: 20090114
  Receipt Date: 20090108
  Transmission Date: 20090719
  Serious: Yes (Hospitalization)
  Sender: FDA-Public Use
  Company Number: 09TR001125

PATIENT
  Age: 48 Year
  Sex: Male

DRUGS (1)
  1. PAROXETINE HCL [Suspect]
     Indication: MAJOR DEPRESSION
     Dosage: 20 MG, QD; 10 MG, QD

REACTIONS (2)
  - EXTRAPYRAMIDAL DISORDER [None]
  - PARKINSONISM [None]
